FAERS Safety Report 16049222 (Version 1)
Quarter: 2019Q1

REPORT INFORMATION
  Report Type: Spontaneous
  Country: JP (occurrence: JP)
  Receive Date: 20190307
  Receipt Date: 20190307
  Transmission Date: 20190418
  Serious: Yes (Other)
  Sender: FDA-Public Use
  Company Number: JP-BAYER-2019-045526

PATIENT
  Age: 6 Decade
  Sex: Male
  Weight: 61.2 kg

DRUGS (1)
  1. STIVARGA [Suspect]
     Active Substance: REGORAFENIB
     Indication: GASTROINTESTINAL STROMAL TUMOUR
     Dosage: 160 MG, QD
     Route: 048
     Dates: start: 201703, end: 201804

REACTIONS (4)
  - Hepatic rupture [Unknown]
  - Melaena [Unknown]
  - Abdominal pain [Unknown]
  - Gastrointestinal stromal tumour [None]

NARRATIVE: CASE EVENT DATE: 201709
